FAERS Safety Report 8808502 (Version 1)
Quarter: 2012Q4

REPORT INFORMATION
  Report Type: Spontaneous
  Country: US (occurrence: None)
  Receive Date: 20120920
  Receipt Date: 20120920
  Transmission Date: 20130627
  Serious: Yes (Other)
  Sender: FDA-Public Use
  Company Number: None

PATIENT
  Sex: Male
  Weight: 109.77 kg

DRUGS (1)
  1. IPILIMUMAB [Suspect]
     Indication: MELANOMA
     Dosage: 10 mg/kg IV over 90min
     Dates: start: 20100527, end: 20100527

REACTIONS (11)
  - Fatigue [None]
  - Decreased appetite [None]
  - Weight increased [None]
  - Malaise [None]
  - Feeling abnormal [None]
  - Rash [None]
  - Colitis [None]
  - Blood cortisol decreased [None]
  - Hyponatraemia [None]
  - Hypoalbuminaemia [None]
  - Blood thyroid stimulating hormone increased [None]
